FAERS Safety Report 15014499 (Version 2)
Quarter: 2019Q1

REPORT INFORMATION
  Report Type: Spontaneous
  Country: US (occurrence: US)
  Receive Date: 20180615
  Receipt Date: 20190309
  Transmission Date: 20190417
  Serious: No
  Sender: FDA-Public Use
  Company Number: US-ASTRAZENECA-2018SE67346

PATIENT
  Age: 80 Year
  Sex: Male
  Weight: 73.5 kg

DRUGS (7)
  1. DILTIAZEM. [Concomitant]
     Active Substance: DILTIAZEM
     Indication: HEART RATE IRREGULAR
     Dosage: UNKNOWN
     Dates: start: 2017
  2. SYMBICORT [Suspect]
     Active Substance: BUDESONIDE\FORMOTEROL FUMARATE DIHYDRATE
     Indication: DYSPNOEA
     Dosage: ONE PUFF AT NIGHT EVERY 2-3 DAYS
     Route: 055
  3. SYMBICORT [Suspect]
     Active Substance: BUDESONIDE\FORMOTEROL FUMARATE DIHYDRATE
     Indication: DYSPNOEA
     Dosage: 80-4.MCG TWO PUFFS TWICE A DAY ABOUT A YEAR AND A HALF AGO
     Route: 055
     Dates: start: 2017
  4. SYMBICORT [Suspect]
     Active Substance: BUDESONIDE\FORMOTEROL FUMARATE DIHYDRATE
     Indication: ASTHMA
     Dosage: ONE PUFF AT NIGHT EVERY 2-3 DAYS
     Route: 055
  5. ALBUTEROL. [Concomitant]
     Active Substance: ALBUTEROL
     Dosage: AS REQUIRED
  6. SYMBICORT [Suspect]
     Active Substance: BUDESONIDE\FORMOTEROL FUMARATE DIHYDRATE
     Indication: ASTHMA
     Dosage: 80-4.MCG TWO PUFFS TWICE A DAY ABOUT A YEAR AND A HALF AGO
     Route: 055
     Dates: start: 2017
  7. RANITIDINE. [Concomitant]
     Active Substance: RANITIDINE
     Indication: GASTROOESOPHAGEAL REFLUX DISEASE

REACTIONS (8)
  - Oropharyngeal pain [Unknown]
  - Off label use [Unknown]
  - Asthma [Unknown]
  - Wrong technique in product usage process [Unknown]
  - Dysphonia [Unknown]
  - Product use in unapproved indication [Not Recovered/Not Resolved]
  - Productive cough [Unknown]
  - Intentional product misuse [Unknown]

NARRATIVE: CASE EVENT DATE: 2017
